FAERS Safety Report 18700716 (Version 1)
Quarter: 2021Q1

REPORT INFORMATION
  Report Type: Spontaneous
  Country: US (occurrence: US)
  Receive Date: 20210105
  Receipt Date: 20210105
  Transmission Date: 20210419
  Serious: No
  Sender: FDA-Public Use
  Company Number: US-ALLERGAN-2001906US

PATIENT
  Age: 74 Year
  Sex: Male

DRUGS (1)
  1. PREDNISOLONE ACETATE, 1.0% [Suspect]
     Active Substance: PREDNISOLONE ACETATE
     Indication: EYE INFLAMMATION
     Dosage: UNK
     Route: 047

REACTIONS (3)
  - Poor quality product administered [Unknown]
  - Vision blurred [Recovered/Resolved]
  - Liquid product physical issue [Unknown]

NARRATIVE: CASE EVENT DATE: 20200110
